FAERS Safety Report 8268424-2 (Version None)
Quarter: 2012Q2

REPORT INFORMATION
  Report Type: 
  Country: None (occurrence: None)
  Receive Date: 20120409
  Receipt Date: 20120405
  Transmission Date: 20120825
  Serious: Yes (Other)
  Sender: FDA-Public Use
  Company Number: BR-ABBOTT-12P-020-0922376-00

PATIENT
  Sex: Female
  Weight: 46 kg

DRUGS (1)
  1. HUMIRA [Suspect]
     Indication: CROHN'S DISEASE
     Route: 058
     Dates: end: 20111001

REACTIONS (4)
  - HYPERTHYROIDISM [None]
  - INTESTINAL FISTULA [None]
  - GASTROINTESTINAL INFLAMMATION [None]
  - ARRHYTHMIA [None]
